FAERS Safety Report 18450831 (Version 7)
Quarter: 2021Q4

REPORT INFORMATION
  Report Type: Report from Study
  Country: CA (occurrence: CA)
  Receive Date: 20201030
  Receipt Date: 20211020
  Transmission Date: 20220304
  Serious: Yes (Other)
  Sender: FDA-Public Use
  Company Number: CA-ROCHE-2701380

PATIENT
  Age: 72 Year
  Sex: Female
  Weight: 140.8 kg

DRUGS (22)
  1. POLATUZUMAB VEDOTIN [Suspect]
     Active Substance: POLATUZUMAB VEDOTIN
     Indication: Diffuse large B-cell lymphoma
     Dosage: ON 24/JUL/2019, SHE RECEIVED MOST RECENT DOSE (175 MG) OF POLATUZUMAB VEDOTIN PRIOR TO SAE ONSET.
     Route: 042
     Dates: start: 20190411
  2. PLACEBO [Suspect]
     Active Substance: UNSPECIFIED INGREDIENT
     Indication: Diffuse large B-cell lymphoma
     Dosage: ON 24/JUL/2019, SHE RECEIVED MOST RECENT DOSE OF PLACEBO PRIOR TO SAE ONSET
     Route: 042
     Dates: start: 20190410
  3. DOXORUBICIN [Suspect]
     Active Substance: DOXORUBICIN
     Indication: Diffuse large B-cell lymphoma
     Dosage: ON 24/JUL/2019, SHE RECEIVED MOST RECENT DOSE (111 MG) OF DOXORUBICIN PRIOR TO SAE ONSET.
     Route: 042
     Dates: start: 20190410
  4. CYCLOPHOSPHAMIDE [Suspect]
     Active Substance: CYCLOPHOSPHAMIDE
     Indication: Diffuse large B-cell lymphoma
     Dosage: ON 24/JUL/2019, SHE RECEIVED MOST RECENT DOSE (1665 MG) OF CYCLOPHOSPHAMIDE PRIOR TO SAE ONSET.
     Route: 042
     Dates: start: 20190410
  5. PREDNISONE [Suspect]
     Active Substance: PREDNISONE
     Indication: Diffuse large B-cell lymphoma
     Dosage: ON 24/JUL/2019, SHE RECEIVED MOST RECENT DOSE OF PREDNISONE (100 MG) PRIOR TO SAE ONSET.
     Route: 048
     Dates: start: 20190410
  6. RITUXIMAB [Suspect]
     Active Substance: RITUXIMAB
     Indication: Diffuse large B-cell lymphoma
     Dosage: ON 04/SEP/2019, SHE RECEIVED MOST RECENT DOSE OF RITUXIMAB (833 MG) PRIOR TO SAE ONSET.
     Route: 042
     Dates: start: 20190410
  7. PREGABALIN [Concomitant]
     Active Substance: PREGABALIN
     Indication: Fibromyalgia
     Route: 048
     Dates: start: 2017
  8. ACETAMINOPHEN [Concomitant]
     Active Substance: ACETAMINOPHEN
     Indication: Fibromyalgia
     Route: 048
     Dates: start: 2007
  9. SYNTHROID [Concomitant]
     Active Substance: LEVOTHYROXINE SODIUM
     Indication: Benign neoplasm of thyroid gland
     Route: 048
     Dates: start: 2012
  10. PANTOPRAZOLE [Concomitant]
     Active Substance: PANTOPRAZOLE
     Indication: Dyspepsia
     Route: 048
     Dates: start: 2004
  11. CALCIUM CARBONATE [Concomitant]
     Active Substance: CALCIUM CARBONATE
     Indication: Osteoarthritis
     Route: 048
     Dates: start: 2000
  12. VITAMIN D3 [Concomitant]
     Active Substance: CHOLECALCIFEROL
     Dosage: 10000 U
     Route: 048
     Dates: start: 2000
  13. FLUTICASONE FUROATE [Concomitant]
     Active Substance: FLUTICASONE FUROATE
     Indication: Sleep apnoea syndrome
     Route: 045
     Dates: start: 2014
  14. FUCIDIN [Concomitant]
     Active Substance: FUSIDATE SODIUM
     Indication: Sleep apnoea syndrome
     Route: 061
     Dates: start: 2014
  15. DICLOFENAC [Concomitant]
     Active Substance: DICLOFENAC
     Indication: Osteoarthritis
     Route: 061
     Dates: start: 2012
  16. VALACYCLOVIR [Concomitant]
     Active Substance: VALACYCLOVIR HYDROCHLORIDE
     Route: 048
     Dates: start: 20190410
  17. CLOTRIMAZOLE [Concomitant]
     Active Substance: CLOTRIMAZOLE
     Indication: Vaginal infection
     Route: 067
  18. SEPTRA DS [Concomitant]
     Active Substance: SULFAMETHOXAZOLE\TRIMETHOPRIM
     Route: 048
     Dates: start: 20190430
  19. OCUNOX (CANADA) [Concomitant]
     Indication: Sjogren^s syndrome
     Dosage: 5 OTHER
     Route: 047
     Dates: start: 20191018
  20. CYMBALTA [Concomitant]
     Active Substance: DULOXETINE HYDROCHLORIDE
     Indication: Paraesthesia
     Route: 048
     Dates: start: 20200902, end: 20210113
  21. CYMBALTA [Concomitant]
     Active Substance: DULOXETINE HYDROCHLORIDE
     Route: 048
     Dates: start: 20210114
  22. ASPIRIN [Concomitant]
     Active Substance: ASPIRIN
     Indication: Cardiovascular event prophylaxis
     Route: 048
     Dates: start: 20200123

REACTIONS (1)
  - Transient global amnesia [Recovered/Resolved]

NARRATIVE: CASE EVENT DATE: 20200122
